FAERS Safety Report 15195079 (Version 5)
Quarter: 2021Q2

REPORT INFORMATION
  Report Type: Report from Study
  Country: CA (occurrence: CA)
  Receive Date: 20180725
  Receipt Date: 20210519
  Transmission Date: 20210716
  Serious: Yes (Other)
  Sender: FDA-Public Use
  Company Number: CA-GLAXOSMITHKLINE-CA2018GSK108447

PATIENT
  Age: 77 Year
  Sex: Male

DRUGS (20)
  1. VITAMIN D3 [Concomitant]
     Active Substance: CHOLECALCIFEROL
     Indication: PRODUCT USED FOR UNKNOWN INDICATION
     Dosage: UNK
  2. ACETAMINOPHEN. [Concomitant]
     Active Substance: ACETAMINOPHEN
     Indication: PRODUCT USED FOR UNKNOWN INDICATION
     Dosage: UNK
  3. TYLENOL [Concomitant]
     Active Substance: ACETAMINOPHEN
     Indication: SINUS DISORDER
     Dosage: UNK
  4. AVAMYS [Suspect]
     Active Substance: FLUTICASONE FUROATE
     Indication: NASAL CONGESTION
     Dosage: 2 PUFFS
  5. SYMBICORT [Suspect]
     Active Substance: BUDESONIDE\FORMOTEROL FUMARATE DIHYDRATE
     Indication: PRODUCT USED FOR UNKNOWN INDICATION
     Dosage: 2 PUFF(S), TID, SOMETIMES QID, AS REQUIRED
  6. NIFEDIPINE. [Concomitant]
     Active Substance: NIFEDIPINE
     Indication: PRODUCT USED FOR UNKNOWN INDICATION
     Dosage: UNK
  7. AVAMYS [Suspect]
     Active Substance: FLUTICASONE FUROATE
     Indication: UPPER-AIRWAY COUGH SYNDROME
     Dosage: 2 DF
  8. CETRIZINE [Suspect]
     Active Substance: CETIRIZINE HYDROCHLORIDE
     Indication: PRODUCT USED FOR UNKNOWN INDICATION
     Dosage: UNK
  9. ADALAT CC [Concomitant]
     Active Substance: NIFEDIPINE
     Indication: PRODUCT USED FOR UNKNOWN INDICATION
     Dosage: 20 MG, 1D
  10. VENTOLIN [Suspect]
     Active Substance: ALBUTEROL SULFATE
     Indication: PRODUCT USED FOR UNKNOWN INDICATION
     Dosage: UNK, AS REQUIRED
  11. SINGULAIR [Suspect]
     Active Substance: MONTELUKAST SODIUM
     Indication: PRODUCT USED FOR UNKNOWN INDICATION
     Dosage: UNK
  12. FORMOTEROL FUMARATE [Suspect]
     Active Substance: FORMOTEROL FUMARATE
     Indication: PRODUCT USED FOR UNKNOWN INDICATION
     Dosage: UNK
     Route: 055
  13. REACTINE [CETIRIZINE HYDROCHLORIDE] [Suspect]
     Active Substance: CETIRIZINE HYDROCHLORIDE
     Indication: PRODUCT USED FOR UNKNOWN INDICATION
     Dosage: UNK, AS REQUIRED
  14. SALBUTAMOL [Suspect]
     Active Substance: ALBUTEROL
     Indication: PRODUCT USED FOR UNKNOWN INDICATION
     Dosage: UNK
  15. ROSUVASTATIN. [Concomitant]
     Active Substance: ROSUVASTATIN
     Indication: PRODUCT USED FOR UNKNOWN INDICATION
     Dosage: 10 MG, Z
     Route: 058
  16. MEPOLIZUMAB [Suspect]
     Active Substance: MEPOLIZUMAB
     Indication: ASTHMA
     Dosage: 100 MG, Z, MONTHLY
     Route: 042
     Dates: start: 20161005
  17. AVAMYS [Suspect]
     Active Substance: FLUTICASONE FUROATE
     Indication: UPPER-AIRWAY COUGH SYNDROME
  18. VALSARTAN. [Concomitant]
     Active Substance: VALSARTAN
     Indication: PRODUCT USED FOR UNKNOWN INDICATION
     Dosage: 160 MG, 1D
  19. AVAMYS [Suspect]
     Active Substance: FLUTICASONE FUROATE
     Indication: NASAL CONGESTION
  20. MONTELUKAST SODIUM. [Suspect]
     Active Substance: MONTELUKAST SODIUM
     Indication: PRODUCT USED FOR UNKNOWN INDICATION
     Dosage: 10 MG, QD

REACTIONS (22)
  - Cough [Recovered/Resolved]
  - Sputum discoloured [Unknown]
  - Sinusitis [Recovered/Resolved]
  - Blood count abnormal [Recovered/Resolved]
  - Chest discomfort [Recovered/Resolved]
  - Sleep disorder due to a general medical condition [Recovering/Resolving]
  - Productive cough [Recovered/Resolved]
  - Balance disorder [Recovered/Resolved]
  - Musculoskeletal disorder [Recovered/Resolved]
  - Loss of personal independence in daily activities [Unknown]
  - Therapeutic product effect incomplete [Recovered/Resolved]
  - Asthma [Recovered/Resolved]
  - Mobility decreased [Recovered/Resolved]
  - Wheezing [Recovered/Resolved]
  - Lower respiratory tract infection [Recovered/Resolved]
  - Dyspnoea [Recovered/Resolved]
  - Rhinitis [Recovered/Resolved]
  - Feeling abnormal [Unknown]
  - Social problem [Unknown]
  - Middle insomnia [Recovered/Resolved]
  - Product dose omission issue [Unknown]
  - Gait disturbance [Recovered/Resolved]

NARRATIVE: CASE EVENT DATE: 20160429
